FAERS Safety Report 12939736 (Version 1)
Quarter: 2016Q4

REPORT INFORMATION
  Report Type: Spontaneous
  Country: US (occurrence: US)
  Receive Date: 20161115
  Receipt Date: 20161115
  Transmission Date: 20170207
  Serious: No
  Sender: FDA-Public Use
  Company Number: US-BAYER-2016-218436

PATIENT
  Age: 79 Year
  Sex: Male
  Weight: 71.2 kg

DRUGS (5)
  1. METOPROLOL. [Concomitant]
     Active Substance: METOPROLOL
  2. LOSERTRIN [Concomitant]
  3. MIRALAX [Suspect]
     Active Substance: POLYETHYLENE GLYCOL 3350
     Dosage: ABOUT THIMBLE
     Dates: start: 1999, end: 201611
  4. AMLODIPIN [Concomitant]
     Active Substance: AMLODIPINE BESYLATE
  5. MIRAFIBER POWDER [Suspect]
     Active Substance: METHYLCELLULOSES

REACTIONS (3)
  - Product use issue [Unknown]
  - Drug ineffective [None]
  - Product quality issue [None]

NARRATIVE: CASE EVENT DATE: 1999
